FAERS Safety Report 25124632 (Version 3)
Quarter: 2025Q3

REPORT INFORMATION
  Report Type: Report from Study
  Country: US (occurrence: US)
  Receive Date: 20250326
  Receipt Date: 20250810
  Transmission Date: 20251021
  Serious: No
  Sender: ALEXION PHARMACEUTICALS
  Company Number: US-AstraZeneca-CH-00834144AP

PATIENT
  Sex: Female

DRUGS (3)
  1. GLYCOPYRRONIUM\FORMOTEROL FUMARATE [Suspect]
     Active Substance: GLYCOPYRRONIUM\FORMOTEROL FUMARATE
     Route: 065
  2. GLYCOPYRRONIUM\FORMOTEROL FUMARATE [Suspect]
     Active Substance: GLYCOPYRRONIUM\FORMOTEROL FUMARATE
     Route: 065
  3. BREZTRI [Suspect]
     Active Substance: BUDESONIDE\FORMOTEROL\GLYCOPYRROLATE
     Route: 065

REACTIONS (12)
  - Oropharyngeal discomfort [Unknown]
  - Muscular weakness [Unknown]
  - Pain in extremity [Unknown]
  - Dyspnoea [Unknown]
  - Fatigue [Unknown]
  - Taste disorder [Unknown]
  - Confusional state [Unknown]
  - Product use issue [Unknown]
  - Drug dose omission by device [Unknown]
  - Wrong technique in product usage process [Unknown]
  - Device malfunction [Unknown]
  - Device issue [Unknown]
